FAERS Safety Report 25903298 (Version 1)
Quarter: 2025Q4

REPORT INFORMATION
  Report Type: Spontaneous
  Country: US (occurrence: US)
  Receive Date: 20251009
  Receipt Date: 20251009
  Transmission Date: 20260117
  Serious: No
  Sender: CALLIDITAS THERAPEUTICS AB
  Company Number: US-Calliditas-2025CAL02875

PATIENT
  Age: 63 Year
  Sex: Female

DRUGS (5)
  1. TARPEYO [Suspect]
     Active Substance: BUDESONIDE
     Indication: IgA nephropathy
     Route: 048
     Dates: start: 20250807
  2. LOSARTAN [Concomitant]
     Active Substance: LOSARTAN
  3. ZETIA [Concomitant]
     Active Substance: EZETIMIBE
  4. ACARBOSE [Concomitant]
     Active Substance: ACARBOSE
  5. MACRODANTIN [Concomitant]
     Active Substance: NITROFURANTOIN

REACTIONS (3)
  - Blood glucose fluctuation [Recovering/Resolving]
  - Energy increased [Recovering/Resolving]
  - Intentional underdose [Recovered/Resolved]

NARRATIVE: CASE EVENT DATE: 20250926
